FAERS Safety Report 9916285 (Version 1)
Quarter: 2014Q1

REPORT INFORMATION
  Report Type: Spontaneous
  Country: IT (occurrence: IT)
  Receive Date: 20140221
  Receipt Date: 20140221
  Transmission Date: 20141002
  Serious: Yes (Death, Other)
  Sender: FDA-Public Use
  Company Number: PHHY2014IT019882

PATIENT
  Age: 20 Year
  Sex: Male

DRUGS (14)
  1. IMATINIB [Suspect]
     Indication: EWING^S SARCOMA
  2. KETOPROFEN [Suspect]
     Indication: EWING^S SARCOMA
     Dosage: 100 MG, PER DAY
  3. TRAMADOL [Suspect]
     Indication: EWING^S SARCOMA
     Dosage: 100 MG, Q6H
     Route: 048
  4. VINCRISTINE [Suspect]
     Indication: EWING^S SARCOMA
  5. FENTANYL [Suspect]
     Indication: BREAKTHROUGH PAIN
     Dosage: 100 UG, PRN
     Route: 045
  6. FENTANYL [Suspect]
     Dosage: 400 UG
  7. OXYCODONE HYDROCHLORIDE [Suspect]
     Indication: BREAKTHROUGH PAIN
     Dosage: 10 MG, Q8H
  8. OXYCODONE HYDROCHLORIDE [Suspect]
     Dosage: 5 MG, SHORT-ACTING
  9. OXYCODONE HYDROCHLORIDE [Suspect]
     Dosage: 60 MG, Q8H
  10. CICLOFOSFAMIDA [Suspect]
     Indication: EWING^S SARCOMA
  11. ADRIAMYCIN [Suspect]
     Indication: EWING^S SARCOMA
  12. SUNITINIB [Suspect]
     Indication: GASTROINTESTINAL STROMAL TUMOUR
  13. IFOSFAMIDE [Concomitant]
     Indication: EWING^S SARCOMA
  14. GABAPENTIN [Concomitant]
     Indication: BREAKTHROUGH PAIN
     Dosage: 200 MG, Q8H

REACTIONS (10)
  - Death [Fatal]
  - Ewing^s sarcoma [Unknown]
  - Malignant neoplasm progression [Unknown]
  - Metastases to liver [Unknown]
  - Metastases to peritoneum [Unknown]
  - Abdominal pain [Unknown]
  - Drug dependence [Unknown]
  - Drug abuse [Unknown]
  - Breakthrough pain [Unknown]
  - Therapeutic response decreased [Unknown]
